FAERS Safety Report 7229083-0 (Version None)
Quarter: 2011Q1

REPORT INFORMATION
  Report Type: 
  Country: None (occurrence: None)
  Receive Date: 20110117
  Receipt Date: 20110106
  Transmission Date: 20110831
  Serious: Yes (Other)
  Sender: FDA-Public Use
  Company Number: US-SANOFI-AVENTIS-2011SA001010

PATIENT
  Age: 82 Year
  Sex: Male

DRUGS (4)
  1. CARDIZEM [Concomitant]
  2. BETA BLOCKING AGENTS [Concomitant]
  3. ANTI-DIABETICS [Concomitant]
  4. MULTAQ [Suspect]
     Indication: ATRIAL FIBRILLATION
     Route: 048
     Dates: start: 20101214, end: 20101219

REACTIONS (4)
  - CARDIAC FAILURE CONGESTIVE [None]
  - DECREASED APPETITE [None]
  - DECREASED ACTIVITY [None]
  - INSOMNIA [None]
